FAERS Safety Report 5931684-4 (Version None)
Quarter: 2008Q4

REPORT INFORMATION
  Report Type: 
  Country: None (occurrence: None)
  Receive Date: 20081009
  Receipt Date: 20080131
  Transmission Date: 20090506
  Serious: Yes (Other)
  Sender: FDA-Public Use
  Company Number: PHEH2008US01406

PATIENT
  Age: 75 Year
  Sex: Female
  Weight: 40.4 kg

DRUGS (4)
  1. ZOMETA [Suspect]
     Indication: METASTASES TO BONE
  2. ARIMIDEX [Concomitant]
  3. POTASSIUM BICARBONATE W/POTASSIUM CITRATE (POTASSIUM BICARBONATE, POTA [Concomitant]
  4. FASLODEX [Concomitant]

REACTIONS (3)
  - BONE DISORDER [None]
  - OSTEONECROSIS [None]
  - PAIN IN JAW [None]
